FAERS Safety Report 4498780-2 (Version None)
Quarter: 2004Q3

REPORT INFORMATION
  Report Type: 
  Country: None (occurrence: None)
  Receive Date: 20040927
  Receipt Date: 20040616
  Transmission Date: 20050211
  Serious: No
  Sender: FDA-Public Use
  Company Number: USA040670350

PATIENT
  Age: 7 Year
  Sex: Male
  Weight: 27 kg

DRUGS (3)
  1. STRATTERA [Suspect]
     Indication: ATTENTION DEFICIT/HYPERACTIVITY DISORDER
     Dosage: 25 MG/1 DAY
     Dates: start: 20040610
  2. ADDERALL 10 [Concomitant]
  3. METADATE (METHYLPHENIDATE HYDROCHLORIDE) [Concomitant]

REACTIONS (2)
  - PALLOR [None]
  - PARAESTHESIA [None]
